FAERS Safety Report 12951062 (Version 1)
Quarter: 2016Q4

REPORT INFORMATION
  Report Type: Spontaneous
  Country: BR (occurrence: BR)
  Receive Date: 20161117
  Receipt Date: 20161117
  Transmission Date: 20170207
  Serious: Yes (Other)
  Sender: FDA-Public Use
  Company Number: BR-PFIZER INC-2016530475

PATIENT
  Age: 59 Year
  Sex: Female
  Weight: 65 kg

DRUGS (4)
  1. LYRICA [Suspect]
     Active Substance: PREGABALIN
     Indication: TOOTHACHE
     Dosage: 150 MG, TWICE PER DAY
     Route: 048
     Dates: start: 2014
  2. PRISTIQ EXTENDED-RELEASE [Concomitant]
     Active Substance: DESVENLAFAXINE SUCCINATE
     Dosage: 100 MG, UNK
     Route: 048
     Dates: start: 2014
  3. LYRICA [Suspect]
     Active Substance: PREGABALIN
     Indication: FACIAL PAIN
  4. LYRICA [Suspect]
     Active Substance: PREGABALIN
     Indication: NECK PAIN

REACTIONS (4)
  - Swelling [Unknown]
  - Breast cancer [Recovered/Resolved]
  - Urine flow decreased [Unknown]
  - Dyspnoea [Unknown]

NARRATIVE: CASE EVENT DATE: 2015
